FAERS Safety Report 7792525-6 (Version None)
Quarter: 2011Q4

REPORT INFORMATION
  Report Type: 
  Country: None (occurrence: None)
  Receive Date: 20111003
  Receipt Date: 20110927
  Transmission Date: 20120403
  Serious: Yes (Other)
  Sender: FDA-Public Use
  Company Number: LU-AMGEN-LUXSP2011050283

PATIENT

DRUGS (3)
  1. ANTINEOPLASTIC AGENTS [Concomitant]
     Indication: BREAST CANCER
  2. TAXANES [Concomitant]
     Indication: BREAST CANCER
  3. NEUPOGEN [Suspect]
     Indication: CHEMOTHERAPY
     Dosage: UNK
     Route: 058

REACTIONS (4)
  - DIZZINESS [None]
  - NAUSEA [None]
  - MALAISE [None]
  - VOMITING [None]
